FAERS Safety Report 6243062-1 (Version None)
Quarter: 2009Q2

REPORT INFORMATION
  Report Type: 
  Country: None (occurrence: None)
  Receive Date: 20090624
  Receipt Date: 20090612
  Transmission Date: 20091009
  Serious: Yes (Hospitalization)
  Sender: FDA-Public Use
  Company Number: DE-ELI_LILLY_AND_COMPANY-DE200906003284

PATIENT
  Age: 37 Year
  Sex: Male
  Weight: 103.3 kg

DRUGS (5)
  1. ZYPREXA [Suspect]
     Indication: BIPOLAR DISORDER
     Dosage: 5 MG, DAILY (1/D)
     Route: 048
     Dates: start: 20020101
  2. ZYPREXA [Suspect]
     Dosage: 10 MG, DAILY (1/D)
     Route: 048
     Dates: end: 20090312
  3. ZYPREXA [Suspect]
     Dosage: 2.5 MG, DAILY (1/D)
     Route: 048
     Dates: start: 20090313, end: 20090101
  4. ERGENYL [Concomitant]
     Dosage: 1300 MG, DAILY (1/D)
     Route: 048
     Dates: start: 20040601
  5. LITHIUM CARBONATE [Concomitant]
     Dosage: 900 MG, DAILY (1/D)
     Route: 048
     Dates: start: 20020101

REACTIONS (3)
  - BIPOLAR DISORDER [None]
  - HYPERTENSION [None]
  - WEIGHT INCREASED [None]
